FAERS Safety Report 5987639-7 (Version None)
Quarter: 2008Q4

REPORT INFORMATION
  Report Type: 
  Country: None (occurrence: None)
  Receive Date: 20081209
  Receipt Date: 20081208
  Transmission Date: 20090506
  Serious: Yes (Disabling)
  Sender: FDA-Public Use
  Company Number: US-B.I. PHARMACEUTICALS,INC./RIDGEFIELD-2008-BP-15769BP

PATIENT
  Age: 74 Year
  Sex: Male

DRUGS (30)
  1. SPIRIVA [Suspect]
     Indication: DYSPNOEA
     Dosage: 1PUF
     Route: 055
     Dates: start: 20060901
  2. SPIRIVA [Suspect]
     Indication: ASTHMA
  3. SPIRIVA [Suspect]
     Indication: CARDIAC FAILURE CONGESTIVE
  4. PROAIR HFA [Concomitant]
  5. VICODIN [Concomitant]
  6. TUSSIONEX [Concomitant]
  7. BUMEX [Concomitant]
  8. MORPHINE SULFATE [Concomitant]
     Route: 048
  9. ATARAX HYDROCORTISONE HCL [Concomitant]
     Dosage: 50MG
     Route: 048
  10. NORVASC [Concomitant]
     Dosage: 10MG
     Route: 048
  11. LYRICA [Concomitant]
     Dosage: 150MG
     Route: 048
  12. ADVAIR DISKUS 100/50 [Concomitant]
     Dosage: 2PUF
     Route: 055
  13. NAPROSYN [Concomitant]
     Dosage: 1000MG
     Route: 048
  14. DURAGESIC-100 [Concomitant]
     Route: 062
  15. NORGESIC FORTE [Concomitant]
     Route: 048
  16. PREVACID [Concomitant]
     Dosage: 30MG
     Route: 048
  17. INDOMETHACIN [Concomitant]
     Route: 048
  18. VICODIN ES [Concomitant]
     Route: 048
  19. XALATAN [Concomitant]
     Route: 031
  20. AMBIEN [Concomitant]
     Dosage: 10MG
     Route: 048
  21. LASIX [Concomitant]
     Dosage: 80MG
     Route: 048
  22. AVAPRO [Concomitant]
     Dosage: 300MG
     Route: 048
  23. PREDNISONE TAB [Concomitant]
     Dosage: 20MG
     Route: 048
  24. ROXANOL [Concomitant]
     Route: 048
  25. ATIVAN [Concomitant]
     Dosage: 1MG
     Route: 048
  26. LEXAPRO [Concomitant]
     Dosage: 5MG
     Route: 048
  27. SPECTAZOLE [Concomitant]
     Route: 061
  28. UREA [Concomitant]
     Route: 061
  29. ALPHAGAN [Concomitant]
     Route: 031
  30. ANAPROX DS [Concomitant]
     Dosage: 1100MG
     Route: 048

REACTIONS (1)
  - DRUG INEFFECTIVE [None]
